FAERS Safety Report 6456322-6 (Version None)
Quarter: 2009Q4

REPORT INFORMATION
  Report Type: 
  Country: None (occurrence: None)
  Receive Date: 20091125
  Receipt Date: 20091114
  Transmission Date: 20100525
  Serious: Yes (Life-Threatening, Hospitalization)
  Sender: FDA-Public Use
  Company Number: US-SANOFI-AVENTIS-2009SA002693

PATIENT
  Sex: Male

DRUGS (1)
  1. MULTAQ [Suspect]
     Indication: ATRIAL TACHYCARDIA
     Route: 048
     Dates: start: 20091111

REACTIONS (5)
  - CARDIAC FAILURE [None]
  - HEPATOCELLULAR INJURY [None]
  - HYPOPERFUSION [None]
  - MULTI-ORGAN FAILURE [None]
  - SEPSIS [None]
